FAERS Safety Report 19625815 (Version 1)
Quarter: 2021Q3

REPORT INFORMATION
  Report Type: Spontaneous
  Country: US (occurrence: US)
  Receive Date: 20210728
  Receipt Date: 20210728
  Transmission Date: 20211014
  Serious: Yes (Other)
  Sender: FDA-Public Use
  Company Number: None

PATIENT
  Age: 78 Year
  Sex: Female
  Weight: 51.75 kg

DRUGS (7)
  1. BYSTOLIC [Concomitant]
     Active Substance: NEBIVOLOL HYDROCHLORIDE
  2. EZETIMIBE. [Concomitant]
     Active Substance: EZETIMIBE
  3. ROSUVASTATIN. [Concomitant]
     Active Substance: ROSUVASTATIN
  4. COENZYME Q10 [Concomitant]
     Active Substance: DIETARY SUPPLEMENT\UBIDECARENONE
  5. BAYER LOW DOSE [Concomitant]
     Active Substance: ASPIRIN
  6. CHLORHEXIDINE 0.12% RINSE [Suspect]
     Active Substance: CHLORHEXIDINE
     Indication: DENTAL DISORDER PROPHYLAXIS
     Dosage: ?          QUANTITY:15 ML?CAP MEASURELINE;?
     Route: 048
     Dates: start: 20210707, end: 20210716
  7. AMLODIPINE [Concomitant]
     Active Substance: AMLODIPINE BESYLATE

REACTIONS (5)
  - Product complaint [None]
  - Product label confusion [None]
  - Ageusia [None]
  - Dysgeusia [None]
  - Tongue discomfort [None]

NARRATIVE: CASE EVENT DATE: 20210715
